FAERS Safety Report 23992323 (Version 1)
Quarter: 2024Q2

REPORT INFORMATION
  Report Type: Spontaneous
  Country: US (occurrence: US)
  Receive Date: 20240620
  Receipt Date: 20240620
  Transmission Date: 20240715
  Serious: No
  Sender: FDA-Public Use
  Company Number: US-ABBVIE-5798189

PATIENT
  Age: 29 Year
  Sex: Female
  Weight: 65 kg

DRUGS (5)
  1. LILETTA [Suspect]
     Active Substance: LEVONORGESTREL
     Indication: Product used for unknown indication
     Dosage: TIME INTERVAL: AS NECESSARY
     Route: 015
     Dates: start: 20240605
  2. LO LOESTRIN FE [Suspect]
     Active Substance: ETHINYL ESTRADIOL\NORETHINDRONE ACETATE
     Indication: Product used for unknown indication
     Dosage: 1 TAKE  N MG-10 MCG (24)/10 EVERY DAY MCG (2) TABLET?1 TABLET EVERY DAY
     Route: 048
     Dates: start: 20240605
  3. NYSTATIN [Concomitant]
     Active Substance: NYSTATIN
     Indication: Product used for unknown indication
     Dosage: TWO TIMES EVERY DAY TO THE AFFECTED AREA
     Route: 061
  4. NYSTATIN\TRIAMCINOLONE [Concomitant]
     Active Substance: NYSTATIN\TRIAMCINOLONE
     Indication: Product used for unknown indication
     Dosage: APPLY BY TOPICAL ROUTE 2 TIMES EVERY DAY TO THE AFFECTED AREA(S)?ONE 100,000 UNIT/GRAM-0.1 % TOPI...
     Route: 061
     Dates: start: 20240604, end: 20240605
  5. TRIAMCINOLONE ACETONIDE [Concomitant]
     Active Substance: TRIAMCINOLONE ACETONIDE
     Indication: Product used for unknown indication
     Dosage: 0.1 % TOPICAL OINTMENT?APPLY BY TOPICAL ROUTE 2 TIMES EVERY DAY A THIN LAYE TO THE AFFECTED AREA(...
     Route: 061
     Dates: start: 20240605

REACTIONS (1)
  - Vulvovaginal pruritus [Unknown]

NARRATIVE: CASE EVENT DATE: 20240605
